FAERS Safety Report 9648493 (Version 2)
Quarter: 2013Q4

REPORT INFORMATION
  Report Type: Spontaneous
  Country: BR (occurrence: BR)
  Receive Date: 20131028
  Receipt Date: 20131107
  Transmission Date: 20140711
  Serious: Yes (Other)
  Sender: FDA-Public Use
  Company Number: BR-JNJFOC-20131015645

PATIENT
  Age: 53 Year
  Sex: Female

DRUGS (7)
  1. TRAMAL [Suspect]
     Indication: PAIN
     Dosage: 1 CAPSULE OF STRENGTH 50 MG, THREE TIMES DAILY (EVERY 8 HOURS)
     Route: 065
     Dates: start: 20131011, end: 201310
  2. TRAMAL [Suspect]
     Indication: RHEUMATOID ARTHRITIS
     Dosage: 1 CAPSULE OF STRENGTH 50 MG, THREE TIMES DAILY (EVERY 8 HOURS)
     Route: 065
     Dates: start: 20131011, end: 201310
  3. HIGROTON [Concomitant]
     Indication: HYPERTENSION
     Route: 065
  4. ASPIRIN [Concomitant]
     Indication: LIPIDS
     Route: 065
  5. PURAN T4 [Concomitant]
     Indication: HYPOTHYROIDISM
     Route: 065
  6. ALL OTHER THERAPEUTIC PRODUCTS [Concomitant]
     Indication: RHEUMATOID ARTHRITIS
     Route: 065
  7. ALL OTHER THERAPEUTIC PRODUCTS [Concomitant]
     Indication: INFLAMMATION
     Route: 065

REACTIONS (11)
  - Hypotension [Unknown]
  - Cold sweat [Unknown]
  - Feeling abnormal [Unknown]
  - Nausea [Unknown]
  - Peripheral coldness [Unknown]
  - Visual impairment [Unknown]
  - Gait disturbance [Unknown]
  - Vomiting [Unknown]
  - Peripheral coldness [Unknown]
  - Dizziness [Unknown]
  - Chills [Unknown]
